FAERS Safety Report 10599050 (Version 1)
Quarter: 2014Q4

REPORT INFORMATION
  Report Type: Spontaneous
  Country: CN (occurrence: CN)
  Receive Date: 20141121
  Receipt Date: 20141121
  Transmission Date: 20150529
  Serious: Yes (Other)
  Sender: FDA-Public Use
  Company Number: PHHY2014CN147750

PATIENT
  Age: 44 Year
  Sex: Male

DRUGS (10)
  1. CICLOSPORIN [Suspect]
     Active Substance: CYCLOSPORINE
     Indication: PROPHYLAXIS AGAINST GRAFT VERSUS HOST DISEASE
     Dosage: 10 MG/KG QD, ONE DAY BEFORE TRANSPLANTATION, FOR 30 DAYS AND THEN TAPERED
     Route: 048
  2. MYLERAN [Concomitant]
     Active Substance: BUSULFAN
     Dosage: 1 MG/KG,PRIOR TO 2006, EVERY 6 HOURS FOR 3 DAYS
     Route: 048
  3. METHOTREXATE [Suspect]
     Active Substance: METHOTREXATE
     Indication: PROPHYLAXIS AGAINST GRAFT VERSUS HOST DISEASE
     Dosage: 15 MG/M2, 1ST DAY
     Route: 048
  4. SEMUSTINE [Concomitant]
     Active Substance: SEMUSTINE
     Indication: PROPHYLAXIS
     Dosage: 250 MG/M2, FOR 1 DAY
     Route: 048
  5. MYLERAN [Concomitant]
     Active Substance: BUSULFAN
     Indication: PROPHYLAXIS
     Dosage: 0.8 MG/KG, EVERY 6 HOURS FOR 3 DAYS
     Route: 042
  6. METHOTREXATE [Suspect]
     Active Substance: METHOTREXATE
     Dosage: 10 MG/M2, AT 3RD, 6TH, 11TH DAYS AFTER TRANSPLANTION
     Route: 048
  7. METHYLPREDNISOLONE. [Suspect]
     Active Substance: METHYLPREDNISOLONE
     Indication: PROPHYLAXIS AGAINST GRAFT VERSUS HOST DISEASE
     Route: 065
  8. HYDROXYUREA. [Concomitant]
     Active Substance: HYDROXYUREA
     Indication: PROPHYLAXIS
     Dosage: 40 MG/KG, BID, FOR 1 DAY
     Route: 048
  9. CYCLOPHOSPHAMID [Concomitant]
     Active Substance: CYCLOPHOSPHAMIDE
     Indication: PROPHYLAXIS
     Dosage: 1.8 G/ M2, FOR 2 DAYS
     Route: 065
  10. ARA-C [Concomitant]
     Active Substance: CYTARABINE
     Indication: PROPHYLAXIS
     Dosage: 2 G/M2, FOR 1 DAY
     Route: 065

REACTIONS (2)
  - Generalised tonic-clonic seizure [Unknown]
  - Neurotoxicity [Unknown]
